FAERS Safety Report 6760135-5 (Version None)
Quarter: 2010Q2

REPORT INFORMATION
  Report Type: 
  Country: None (occurrence: None)
  Receive Date: 20100608
  Receipt Date: 20100601
  Transmission Date: 20101027
  Serious: Yes (Other)
  Sender: FDA-Public Use
  Company Number: GB-BRISTOL-MYERS SQUIBB COMPANY-15135585

PATIENT
  Sex: Male

DRUGS (2)
  1. ABILIFY [Suspect]
     Dosage: INITIAL DOSE 15MG, THEN INCREASED TO 45MG AND THEN REDUCED TO 15MG
     Route: 065
  2. TOPIRAMATE [Concomitant]
     Route: 065

REACTIONS (2)
  - DRUG INEFFECTIVE [None]
  - HALLUCINATION, AUDITORY [None]
